FAERS Safety Report 15430718 (Version 1)
Quarter: 2018Q3

REPORT INFORMATION
  Report Type: Spontaneous
  Country: JP (occurrence: JP)
  Receive Date: 20180926
  Receipt Date: 20180926
  Transmission Date: 20181010
  Serious: Yes (Life-Threatening, Hospitalization, Other)
  Sender: FDA-Public Use
  Company Number: JP-ACTELION-A-CH2017-153879

PATIENT
  Age: 78 Year
  Sex: Female

DRUGS (18)
  1. UPTRAVI [Suspect]
     Active Substance: SELEXIPAG
     Dosage: 1.2 MG, QD
     Route: 048
     Dates: start: 20170324, end: 20180406
  2. UPTRAVI [Suspect]
     Active Substance: SELEXIPAG
     Dosage: 1 MG, QD
     Route: 048
     Dates: start: 20180126, end: 20180329
  3. BAYASPIRIN [Concomitant]
     Active Substance: ASPIRIN
  4. REVATIO [Concomitant]
     Active Substance: SILDENAFIL CITRATE
  5. ADCIRCA [Suspect]
     Active Substance: TADALAFIL
     Dosage: 20 MG, QD
     Route: 048
     Dates: start: 20180629, end: 20180823
  6. LASIX [Suspect]
     Active Substance: FUROSEMIDE
     Indication: RIGHT VENTRICULAR FAILURE
     Dosage: 40 MG, QD
     Route: 048
     Dates: start: 20170113, end: 20180619
  7. UPTRAVI [Suspect]
     Active Substance: SELEXIPAG
     Dosage: 1 MG, BID
     Route: 048
     Dates: start: 20180829
  8. UPTRAVI [Suspect]
     Active Substance: SELEXIPAG
     Dosage: 0.4 MG, BID
     Route: 048
     Dates: start: 20170310, end: 20170323
  9. OXYGEN. [Concomitant]
     Active Substance: OXYGEN
  10. ADCIRCA [Suspect]
     Active Substance: TADALAFIL
     Indication: PULMONARY ARTERIAL HYPERTENSION
     Dosage: 20 MG, BID
     Route: 048
     Dates: start: 20161118, end: 20180628
  11. ADCIRCA [Suspect]
     Active Substance: TADALAFIL
     Dosage: 20 MG, BID
     Route: 048
     Dates: start: 20180824
  12. UPTRAVI [Suspect]
     Active Substance: SELEXIPAG
     Indication: PULMONARY ARTERIAL HYPERTENSION
     Dosage: 0.2 MG, BID
     Route: 048
     Dates: start: 20170224, end: 20170309
  13. AMLODIPINE [Concomitant]
     Active Substance: AMLODIPINE BESYLATE
  14. SPIRONOLACTONE. [Concomitant]
     Active Substance: SPIRONOLACTONE
  15. OPSUMIT [Suspect]
     Active Substance: MACITENTAN
     Indication: PULMONARY ARTERIAL HYPERTENSION
     Dosage: 10 MG, QD
     Route: 048
     Dates: start: 20160716
  16. UPTRAVI [Suspect]
     Active Substance: SELEXIPAG
     Dosage: 1.6 MG, QD
     Route: 048
     Dates: start: 20170407, end: 20180125
  17. UPTRAVI [Suspect]
     Active Substance: SELEXIPAG
     Dosage: 1.2 MG, QD
     Route: 048
     Dates: start: 20180330, end: 20180828
  18. CARELOAD [Concomitant]
     Active Substance: BERAPROST SODIUM

REACTIONS (28)
  - Hepatic cirrhosis [Unknown]
  - Pneumonia bacterial [Recovered/Resolved]
  - Aortic aneurysm [Not Recovered/Not Resolved]
  - Right ventricular failure [Recovered/Resolved]
  - Craniotomy [Recovered/Resolved]
  - Blood pressure decreased [Recovered/Resolved]
  - Hypoxia [Recovered/Resolved]
  - Renal impairment [Recovering/Resolving]
  - Insomnia [Recovering/Resolving]
  - Brain herniation [Recovered/Resolved]
  - Headache [Recovering/Resolving]
  - Diarrhoea [Recovering/Resolving]
  - Productive cough [Recovering/Resolving]
  - Pleural effusion [Recovering/Resolving]
  - Ascites [Recovering/Resolving]
  - Iron deficiency anaemia [Recovering/Resolving]
  - Chronic gastritis [Recovering/Resolving]
  - Platelet count decreased [Not Recovered/Not Resolved]
  - Hypokalaemia [Recovered/Resolved]
  - Subdural haematoma [Recovered/Resolved]
  - Oxygen saturation abnormal [Recovering/Resolving]
  - Haemoptysis [Recovered/Resolved]
  - Tracheostomy [Unknown]
  - Nephrogenic anaemia [Recovering/Resolving]
  - Blood pressure abnormal [Recovering/Resolving]
  - Melaena [Recovered/Resolved]
  - Treatment noncompliance [Unknown]
  - Urinary tract infection [Recovered/Resolved]

NARRATIVE: CASE EVENT DATE: 20170113
